FAERS Safety Report 9305464 (Version 1)
Quarter: 2013Q2

REPORT INFORMATION
  Report Type: Spontaneous
  Country: US (occurrence: US)
  Receive Date: 20130523
  Receipt Date: 20130523
  Transmission Date: 20140414
  Serious: Yes (Hospitalization)
  Sender: FDA-Public Use
  Company Number: US-SUN PHARMACEUTICAL INDUSTRIES LTD-2013SUN00633

PATIENT
  Age: 27 Year
  Sex: Male

DRUGS (1)
  1. LITHIUM CARBONATE TABLETS, USP 300MG [Suspect]
     Indication: DEPRESSION
     Dosage: 600 MG, TID
     Route: 065

REACTIONS (2)
  - Bundle branch block right [Unknown]
  - Bradycardia [Recovered/Resolved]
